FAERS Safety Report 18204019 (Version 1)
Quarter: 2020Q3

REPORT INFORMATION
  Report Type: Spontaneous
  Country: FR (occurrence: FR)
  Receive Date: 20200827
  Receipt Date: 20200827
  Transmission Date: 20201103
  Serious: Yes (Hospitalization, Other)
  Sender: FDA-Public Use
  Company Number: FR-PFIZER INC-2020328837

PATIENT
  Age: 71 Year
  Sex: Male
  Weight: 74.5 kg

DRUGS (14)
  1. PRIMPERAN [Suspect]
     Active Substance: METOCLOPRAMIDE HYDROCHLORIDE
     Indication: VOMITING
     Dosage: 10 MG, SINGLE
     Route: 042
     Dates: start: 20200801, end: 20200801
  2. TAHOR [Concomitant]
     Active Substance: ATORVASTATIN CALCIUM
     Dosage: UNK
  3. SEROPLEX [Concomitant]
     Active Substance: ESCITALOPRAM OXALATE
     Dosage: UNK
  4. XANAX [Suspect]
     Active Substance: ALPRAZOLAM
     Indication: PREMEDICATION
     Dosage: 0.5 MG, SINGLE
     Route: 048
     Dates: start: 20200801, end: 20200801
  5. DOXORUBICIN HCL [Suspect]
     Active Substance: DOXORUBICIN HYDROCHLORIDE
     Indication: ALVEOLAR SOFT PART SARCOMA
     Dosage: 60 MG/M2, CYCLIC
     Route: 042
     Dates: start: 20200729, end: 20200729
  6. HOLOXAN [Suspect]
     Active Substance: IFOSFAMIDE
     Indication: ALVEOLAR SOFT PART SARCOMA
     Dosage: 2500 MG/M2, CYCLIC
     Route: 042
     Dates: start: 20200729, end: 20200803
  7. SOLUPRED [PREDNISOLONE METASULFOBENZOATE SODIUM] [Suspect]
     Active Substance: PREDNISOLONE SODIUM METAZOATE
     Dosage: 40 MG, DAILY
     Route: 048
     Dates: start: 20200730, end: 20200804
  8. OXYCONTIN [Concomitant]
     Active Substance: OXYCODONE HYDROCHLORIDE
     Dosage: UNK
  9. SPECIAFOLDINE [Concomitant]
     Active Substance: FOLIC ACID
     Dosage: UNK
  10. LEXOMIL [Concomitant]
     Active Substance: BROMAZEPAM
     Dosage: UNK
  11. ZOPHREN [ONDANSETRON HYDROCHLORIDE] [Suspect]
     Active Substance: ONDANSETRON
     Indication: VOMITING
     Dosage: 8 MG, DAILY
     Route: 042
     Dates: start: 20200730, end: 20200803
  12. EMEND [Suspect]
     Active Substance: APREPITANT
     Indication: VOMITING
     Dosage: UNK
     Route: 048
     Dates: start: 20200801, end: 20200802
  13. ZYPREXA [Suspect]
     Active Substance: OLANZAPINE
     Indication: VOMITING
     Dosage: 10 MG, DAILY
     Route: 048
     Dates: start: 20200731, end: 20200802
  14. PLITICAN [Concomitant]
     Active Substance: ALIZAPRIDE HYDROCHLORIDE
     Dosage: UNK

REACTIONS (4)
  - Tachycardia [Recovered/Resolved]
  - Toxic encephalopathy [Recovering/Resolving]
  - Tremor [Recovered/Resolved]
  - Renal impairment [Not Recovered/Not Resolved]

NARRATIVE: CASE EVENT DATE: 20200801
